FAERS Safety Report 8573794 (Version 3)
Quarter: 2013Q4

REPORT INFORMATION
  Report Type: Spontaneous
  Country: US (occurrence: US)
  Receive Date: 20120522
  Receipt Date: 20131025
  Transmission Date: 20140711
  Serious: Yes (Other)
  Sender: FDA-Public Use
  Company Number: US-ROCHE-1070284

PATIENT
  Age: 15 Year
  Sex: Male
  Weight: 63.56 kg

DRUGS (2)
  1. ACCUTANE [Suspect]
     Indication: ACNE
     Route: 065
     Dates: start: 199908, end: 199912
  2. ACCUTANE [Suspect]
     Route: 065
     Dates: end: 2000

REACTIONS (10)
  - Crohn^s disease [Unknown]
  - Colitis ulcerative [Unknown]
  - Oesophageal disorder [Unknown]
  - Hiatus hernia [Unknown]
  - Hypogammaglobulinaemia [Unknown]
  - Depression [Unknown]
  - Injury [Unknown]
  - Inflammatory bowel disease [Unknown]
  - Irritable bowel syndrome [Unknown]
  - Dry skin [Unknown]
